FAERS Safety Report 5514895-1 (Version None)
Quarter: 2007Q4

REPORT INFORMATION
  Report Type: 
  Country: None (occurrence: None)
  Receive Date: 20071113
  Receipt Date: 20060921
  Transmission Date: 20080405
  Serious: No
  Sender: FDA-Public Use
  Company Number: A0621008A

PATIENT
  Age: 65 Year
  Sex: Male

DRUGS (5)
  1. COREG [Suspect]
     Dosage: 6.25MG TWICE PER DAY
     Route: 048
  2. ALTACE [Concomitant]
  3. PLAVIX [Concomitant]
  4. CRESTOR [Concomitant]
  5. DIAZEPAM [Concomitant]

REACTIONS (4)
  - DYSPNOEA [None]
  - FATIGUE [None]
  - FEELING ABNORMAL [None]
  - SOMNOLENCE [None]
